FAERS Safety Report 12976976 (Version 1)
Quarter: 2016Q4

REPORT INFORMATION
  Report Type: Spontaneous
  Country: BR (occurrence: BR)
  Receive Date: 20161128
  Receipt Date: 20161128
  Transmission Date: 20170207
  Serious: Yes (Other)
  Sender: FDA-Public Use
  Company Number: PHHY2016BR158663

PATIENT

DRUGS (1)
  1. SANDOSTATIN LAR DEPOT [Suspect]
     Active Substance: OCTREOTIDE ACETATE
     Indication: ACROMEGALY
     Dosage: 30 MG, QMO
     Route: 030
     Dates: start: 2011

REACTIONS (9)
  - Choking [Unknown]
  - Injection site pain [Unknown]
  - Fear [Unknown]
  - Weight decreased [Unknown]
  - Swelling [Unknown]
  - Thyroid mass [Unknown]
  - Ovarian cyst [Unknown]
  - Nodule [Unknown]
  - Tongue biting [Unknown]
